FAERS Safety Report 7353566-6 (Version None)
Quarter: 2011Q1

REPORT INFORMATION
  Report Type: 
  Country: None (occurrence: None)
  Receive Date: 20110315
  Receipt Date: 20110314
  Transmission Date: 20110831
  Serious: Yes (Death)
  Sender: FDA-Public Use
  Company Number: GB-ABBOTT-11P-167-0711121-00

PATIENT
  Sex: Male
  Weight: 92 kg

DRUGS (2)
  1. METHOTREXATE [Concomitant]
     Indication: PRODUCT USED FOR UNKNOWN INDICATION
     Dates: start: 20020213, end: 20101207
  2. HUMIRA [Suspect]
     Indication: RHEUMATOID ARTHRITIS
     Route: 058
     Dates: start: 20040406, end: 20100903

REACTIONS (1)
  - NEUROENDOCRINE TUMOUR [None]
